FAERS Safety Report 13172521 (Version 1)
Quarter: 2017Q1

REPORT INFORMATION
  Report Type: Spontaneous
  Country: US (occurrence: US)
  Receive Date: 20170131
  Receipt Date: 20170131
  Transmission Date: 20170428
  Serious: Yes (Other)
  Sender: FDA-Public Use
  Company Number: ALCN2017US001021

PATIENT
  Age: 74 Year
  Sex: Male

DRUGS (2)
  1. SYSTANE BALANCE [Suspect]
     Active Substance: PROPYLENE GLYCOL
     Indication: DRY EYE
     Dosage: 1 GTT, QHS
     Route: 047
     Dates: start: 20170116
  2. SYSTANE BALANCE [Suspect]
     Active Substance: PROPYLENE GLYCOL
     Dosage: 1 GTT, QHS
     Route: 047
     Dates: start: 20170118

REACTIONS (4)
  - Eyelid ptosis [Unknown]
  - Expired product administered [Unknown]
  - Myasthenia gravis [Unknown]
  - Eye irritation [Unknown]

NARRATIVE: CASE EVENT DATE: 20170118
